FAERS Safety Report 16038875 (Version 4)
Quarter: 2021Q3

REPORT INFORMATION
  Report Type: Report from Study
  Country: DE (occurrence: DE)
  Receive Date: 20190306
  Receipt Date: 20210726
  Transmission Date: 20211014
  Serious: Yes (Hospitalization)
  Sender: FDA-Public Use
  Company Number: PHHY2018DE192499

PATIENT
  Age: 44 Year
  Sex: Female
  Weight: 57 kg

DRUGS (4)
  1. BENEPALI [Suspect]
     Active Substance: ETANERCEPT
     Indication: ANKYLOSING SPONDYLITIS
     Dosage: UNK
     Route: 058
     Dates: start: 20180823, end: 20181115
  2. LEVOTHYROXIN [Concomitant]
     Active Substance: LEVOTHYROXINE
     Indication: AUTOIMMUNE THYROIDITIS
     Dosage: UNK
     Route: 048
     Dates: start: 20171018
  3. ERELZI [Suspect]
     Active Substance: ETANERCEPT-SZZS
     Indication: ANKYLOSING SPONDYLITIS
     Dosage: 50 MG, QW
     Route: 058
     Dates: start: 20170928, end: 20180816
  4. KETOPROFEN. [Concomitant]
     Active Substance: KETOPROFEN
     Indication: ANKYLOSING SPONDYLITIS
     Dosage: UNK
     Route: 048
     Dates: start: 20170405

REACTIONS (16)
  - Abdominal pain upper [Recovered/Resolved]
  - Discomfort [Unknown]
  - Fatigue [Unknown]
  - Swelling [Unknown]
  - Gait disturbance [Unknown]
  - Depression [Unknown]
  - Injection site pain [Unknown]
  - Injection site swelling [Unknown]
  - Pain [Unknown]
  - Fear of injection [Unknown]
  - Grip strength decreased [Unknown]
  - Skin reaction [Recovered/Resolved]
  - Skin reaction [Recovered/Resolved]
  - Tenderness [Unknown]
  - Pain in extremity [Unknown]
  - Injection site bruising [Unknown]

NARRATIVE: CASE EVENT DATE: 20180712
